FAERS Safety Report 5713831-2 (Version None)
Quarter: 2008Q2

REPORT INFORMATION
  Report Type: 
  Country: None (occurrence: None)
  Receive Date: 20080421
  Receipt Date: 20080410
  Transmission Date: 20081010
  Serious: Yes (Other)
  Sender: FDA-Public Use
  Company Number: 2008AP000860

PATIENT
  Sex: Female
  Weight: 72.5755 kg

DRUGS (6)
  1. BALSALAZIDE DISODIUM [Suspect]
     Indication: CROHN'S DISEASE
     Dosage: 6 CAP;QD;PO, 9 CAP;QD;PO
     Route: 048
     Dates: end: 20080301
  2. BALSALAZIDE DISODIUM [Suspect]
     Indication: CROHN'S DISEASE
     Dosage: 6 CAP;QD;PO, 9 CAP;QD;PO
     Route: 048
     Dates: start: 20070201
  3. LEVOTHYROXINE SODIUM [Concomitant]
  4. VITAMINS [Concomitant]
  5. ASACOL [Suspect]
  6. COLAZAL [Suspect]

REACTIONS (6)
  - ABDOMINAL PAIN [None]
  - DIARRHOEA [None]
  - DRUG INEFFECTIVE [None]
  - HAEMATOCHEZIA [None]
  - RECTAL TENESMUS [None]
  - THERAPEUTIC RESPONSE UNEXPECTED WITH DRUG SUBSTITUTION [None]
